FAERS Safety Report 18590991 (Version 1)
Quarter: 2020Q4

REPORT INFORMATION
  Report Type: Spontaneous
  Country: US (occurrence: US)
  Receive Date: 20201208
  Receipt Date: 20201208
  Transmission Date: 20210114
  Serious: No
  Sender: FDA-Public Use
  Company Number: US-BAYER-2020-268738

PATIENT

DRUGS (1)
  1. MIRALAX [Suspect]
     Active Substance: POLYETHYLENE GLYCOL 3350
     Indication: COLONOSCOPY
     Dosage: SHOULD BE TAKING 238 GRAMS OF THIS PRODUCT. DOSE
     Route: 065

REACTIONS (3)
  - Extra dose administered [Unknown]
  - Product use in unapproved indication [None]
  - Off label use [Unknown]
